FAERS Safety Report 4318015-0 (Version None)
Quarter: 2004Q1

REPORT INFORMATION
  Report Type: 
  Country: None (occurrence: None)
  Receive Date: 20040316
  Receipt Date: 20040309
  Transmission Date: 20041129
  Serious: Yes (Hospitalization, Other)
  Sender: FDA-Public Use
  Company Number: WAES 0403DEU00059

PATIENT
  Age: 74 Year
  Sex: Female

DRUGS (9)
  1. AMLODIPINE BESYLATE [Concomitant]
  2. CERTOPARIN SODIUM [Concomitant]
     Dates: start: 20040101
  3. DIGOXIN [Concomitant]
  4. DIPYRONE [Concomitant]
     Dates: start: 20040101
  5. HYDROCHLOROTHIAZIDE [Concomitant]
  6. METOPROLOL SUCCINATE [Concomitant]
  7. RAMIPRIL [Concomitant]
  8. VIOXX [Suspect]
     Route: 048
     Dates: start: 20020101, end: 20040101
  9. TRAMADOL HYDROCHLORIDE [Concomitant]
     Dates: start: 20040101

REACTIONS (2)
  - ADVERSE EVENT [None]
  - GASTRIC PERFORATION [None]
